FAERS Safety Report 6897603-1 (Version None)
Quarter: 2010Q3

REPORT INFORMATION
  Report Type: 
  Country: None (occurrence: None)
  Receive Date: 20100802
  Receipt Date: 20070627
  Transmission Date: 20110219
  Serious: Yes (Other)
  Sender: FDA-Public Use
  Company Number: US-PFIZER INC-2007053805

PATIENT
  Sex: Female
  Weight: 77.1 kg

DRUGS (5)
  1. LYRICA [Suspect]
     Indication: OEDEMA PERIPHERAL
     Dates: start: 20070619, end: 20070619
  2. LYRICA [Suspect]
     Indication: PAIN IN EXTREMITY
  3. ASTELIN [Concomitant]
  4. ADVAIR DISKUS 100/50 [Concomitant]
  5. MONTELUKAST [Concomitant]

REACTIONS (4)
  - FEELING COLD [None]
  - FEELING HOT [None]
  - SOMNOLENCE [None]
  - VERTIGO [None]
